FAERS Safety Report 7615640-6 (Version None)
Quarter: 2011Q3

REPORT INFORMATION
  Report Type: 
  Country: None (occurrence: None)
  Receive Date: 20110711
  Receipt Date: 20110613
  Transmission Date: 20111222
  Serious: Yes (Hospitalization)
  Sender: FDA-Public Use
  Company Number: 14136923

PATIENT
  Age: 73 Year
  Sex: Male

DRUGS (5)
  1. PLACEBO [Suspect]
     Indication: THROMBOSIS PROPHYLAXIS
     Dosage: ORAL
     Route: 048
     Dates: start: 20080119
  2. SPIRONOLACTONE [Concomitant]
  3. WARFARIN SODIUM [Suspect]
     Indication: THROMBOSIS PROPHYLAXIS
     Dosage: 2 MILLIGRAM, 1 DAY, ORAL
     Route: 048
     Dates: start: 20080119
  4. CARVEDILOL [Concomitant]
  5. ENALAPRIL MALEATE [Concomitant]

REACTIONS (3)
  - ATRIAL FIBRILLATION [None]
  - CARDIAC FAILURE CONGESTIVE [None]
  - BLOOD PRESSURE DECREASED [None]
